FAERS Safety Report 8969967 (Version 2)
Quarter: 2013Q2

REPORT INFORMATION
  Report Type: Spontaneous
  Country: US (occurrence: US)
  Receive Date: 20121218
  Receipt Date: 20130405
  Transmission Date: 20140414
  Serious: Yes (Other)
  Sender: FDA-Public Use
  Company Number: US-BAYER-2012-132344

PATIENT
  Age: 24 Year
  Sex: Female
  Weight: 70.3 kg

DRUGS (1)
  1. MIRENA [Suspect]
     Indication: CONTRACEPTION
     Dosage: 20 MCG/24HR, CONT
     Route: 015
     Dates: start: 200906, end: 201302

REACTIONS (16)
  - Genital haemorrhage [Not Recovered/Not Resolved]
  - Abdominal pain lower [Recovered/Resolved]
  - Weight increased [Not Recovered/Not Resolved]
  - Pallor [Recovering/Resolving]
  - Headache [None]
  - Dizziness [None]
  - Abdominal distension [None]
  - Breast pain [None]
  - Pigmentation disorder [None]
  - Breast swelling [None]
  - Food craving [None]
  - Hot flush [None]
  - Nausea [None]
  - Food aversion [None]
  - Parosmia [None]
  - Fatigue [None]
